FAERS Safety Report 8642852 (Version 2)
Quarter: 2012Q4

REPORT INFORMATION
  Report Type: 
  Country: CA (occurrence: CA)
  Receive Date: 20120629
  Receipt Date: 20120911
  Transmission Date: 20130627
  Serious: Yes (Death)
  Sender: FDA-Public Use
  Company Number: PHHY2012CA055277

PATIENT
  Age: 87 None
  Sex: Female

DRUGS (1)
  1. ACLASTA [Suspect]
     Indication: OSTEOPOROSIS
     Dosage: 5 mg
     Route: 042
     Dates: start: 20120508

REACTIONS (2)
  - Pneumonia [Fatal]
  - General physical health deterioration [Unknown]
